FAERS Safety Report 8287704-8 (Version None)
Quarter: 2012Q2

REPORT INFORMATION
  Report Type: 
  Country: None (occurrence: None)
  Receive Date: 20120416
  Receipt Date: 20120412
  Transmission Date: 20120825
  Serious: Yes (Other)
  Sender: FDA-Public Use
  Company Number: PHHY2012CH030925

PATIENT

DRUGS (2)
  1. SANDOSTATIN LAR [Suspect]
     Dosage: 30 MG, UNK
  2. AFINITOR [Suspect]
     Indication: NEUROENDOCRINE TUMOUR
     Dosage: 10 MG, UNK
     Route: 048

REACTIONS (2)
  - DIARRHOEA [None]
  - GENERALISED ERYTHEMA [None]
